FAERS Safety Report 9067263 (Version 1)
Quarter: 2013Q1

REPORT INFORMATION
  Report Type: Report from Study
  Country: US (occurrence: US)
  Receive Date: 20130131
  Receipt Date: 20130131
  Transmission Date: 20140127
  Serious: No
  Sender: FDA-Public Use
  Company Number: US-ABBOTT-12P-163-0919213-00

PATIENT
  Age: 57 None
  Sex: Female

DRUGS (8)
  1. HUMIRA [Suspect]
     Indication: RHEUMATOID ARTHRITIS
     Dates: start: 20120314
  2. HUMALOG [Concomitant]
     Indication: DIABETES MELLITUS
     Dosage: 100 UNITS/ML CARTRIDGE
     Route: 058
  3. ASTELIN [Concomitant]
     Indication: PRODUCT USED FOR UNKNOWN INDICATION
     Dosage: NASAL SPRAY
  4. METHOTREXATE [Concomitant]
     Indication: PRODUCT USED FOR UNKNOWN INDICATION
     Route: 048
  5. DIOVAN [Concomitant]
     Indication: PRODUCT USED FOR UNKNOWN INDICATION
     Route: 048
  6. CLONIDINE HCL [Concomitant]
     Indication: PRODUCT USED FOR UNKNOWN INDICATION
     Route: 048
  7. FOLIC ACID [Concomitant]
     Indication: PRODUCT USED FOR UNKNOWN INDICATION
     Route: 048
  8. TYLENOL W/CODEINE [Concomitant]
     Indication: PRODUCT USED FOR UNKNOWN INDICATION
     Dosage: #4 TABLET
     Route: 048

REACTIONS (13)
  - Fatigue [Not Recovered/Not Resolved]
  - Drug ineffective [Unknown]
  - Rectal haemorrhage [Unknown]
  - Paranasal sinus hypersecretion [Unknown]
  - Somnolence [Recovered/Resolved]
  - Fatigue [Recovered/Resolved]
  - Oropharyngeal pain [Unknown]
  - Crohn^s disease [Recovering/Resolving]
  - Fatigue [Unknown]
  - Adverse drug reaction [Unknown]
  - Sinusitis noninfective [Unknown]
  - Drug ineffective [Unknown]
  - Fatigue [Unknown]
